FAERS Safety Report 7490521-X (Version None)
Quarter: 2011Q2

REPORT INFORMATION
  Report Type: 
  Country: None (occurrence: None)
  Receive Date: 20110519
  Receipt Date: 20110509
  Transmission Date: 20111010
  Serious: Yes (Hospitalization, Other)
  Sender: FDA-Public Use
  Company Number: US-AMGEN-USASP2011024066

PATIENT
  Age: 56 Year
  Sex: Female

DRUGS (1)
  1. ENBREL [Suspect]
     Indication: RHEUMATOID ARTHRITIS
     Dosage: 50 MG, QWK
     Dates: start: 20060601

REACTIONS (16)
  - FALL [None]
  - RHEUMATOID ARTHRITIS [None]
  - NAUSEA [None]
  - HYPERTENSION [None]
  - THORACIC VERTEBRAL FRACTURE [None]
  - VOMITING [None]
  - BACK PAIN [None]
  - EMOTIONAL DISORDER [None]
  - HYPOAESTHESIA [None]
  - MUSCULOSKELETAL STIFFNESS [None]
  - HERPES ZOSTER [None]
  - RENAL FAILURE CHRONIC [None]
  - HYPONATRAEMIA [None]
  - NEPHROLITHIASIS [None]
  - TRAUMATIC SPINAL CORD COMPRESSION [None]
  - HALLUCINATION [None]
